FAERS Safety Report 15996041 (Version 1)
Quarter: 2019Q1

REPORT INFORMATION
  Report Type: Spontaneous
  Country: US (occurrence: US)
  Receive Date: 20190222
  Receipt Date: 20190222
  Transmission Date: 20190418
  Serious: No
  Sender: FDA-Public Use
  Company Number: US-PERRIGO-18US012942

PATIENT
  Age: 60 Year
  Sex: Female
  Weight: 99.77 kg

DRUGS (1)
  1. LOPERAMIDE HYDROCHLORIDE. [Suspect]
     Active Substance: LOPERAMIDE HYDROCHLORIDE
     Indication: DIARRHOEA
     Dosage: 2 MG, UP TO QID, PRN, EVERY FEW WEEKS
     Route: 048

REACTIONS (1)
  - Intentional product use issue [Unknown]
